FAERS Safety Report 9993115 (Version 1)
Quarter: 2014Q1

REPORT INFORMATION
  Report Type: Spontaneous
  Country: US (occurrence: US)
  Receive Date: 20140310
  Receipt Date: 20140310
  Transmission Date: 20141002
  Serious: Yes (Life-Threatening, Other)
  Sender: FDA-Public Use
  Company Number: US-BAYER-2014-029623

PATIENT
  Age: 40 Year
  Sex: Female

DRUGS (7)
  1. NIFEDIPINE [Suspect]
     Indication: PREMATURE LABOUR
  2. MAGNESIUM SULFATE [Concomitant]
     Indication: TOCOLYSIS
  3. BETAMETHASONE [Concomitant]
     Indication: MATERNAL THERAPY TO ENHANCE FOETAL LUNG MATURITY
  4. INDOCIN [Concomitant]
     Indication: UTERINE LEIOMYOMA
  5. COLACE [Concomitant]
     Indication: CONSTIPATION
     Route: 048
  6. SENNA [Concomitant]
     Route: 048
  7. BISACODYL [Concomitant]
     Route: 054

REACTIONS (9)
  - Uterine rupture [None]
  - Oligohydramnios [None]
  - Foetal heart rate deceleration abnormality [None]
  - Premature baby [None]
  - Pre-eclampsia [None]
  - Premature delivery [None]
  - Maternal exposure during pregnancy [None]
  - Drug ineffective for unapproved indication [None]
  - Constipation [None]
